FAERS Safety Report 19487480 (Version 1)
Quarter: 2021Q3

REPORT INFORMATION
  Report Type: Spontaneous
  Country: DO (occurrence: DO)
  Receive Date: 20210702
  Receipt Date: 20210702
  Transmission Date: 20211014
  Serious: Yes (Other)
  Sender: FDA-Public Use
  Company Number: DO-SA-2021SA100018

PATIENT
  Age: 6 Year
  Sex: Male
  Weight: 19.09 kg

DRUGS (1)
  1. DUPIXENT [Suspect]
     Active Substance: DUPILUMAB
     Indication: DERMATITIS ATOPIC
     Dosage: 300 MG, QM
     Route: 058
     Dates: start: 20210127

REACTIONS (6)
  - Pruritus genital [Unknown]
  - Penile erythema [Unknown]
  - Off label use [Unknown]
  - Product use issue [Unknown]
  - Conjunctivitis [Unknown]
  - Candida infection [Unknown]

NARRATIVE: CASE EVENT DATE: 20210127
